FAERS Safety Report 25991089 (Version 1)
Quarter: 2025Q4

REPORT INFORMATION
  Report Type: Spontaneous
  Country: US (occurrence: US)
  Receive Date: 20251103
  Receipt Date: 20251103
  Transmission Date: 20260118
  Serious: Yes (Hospitalization)
  Sender: SANOFI AVENTIS
  Company Number: US-SA-2025SA316365

PATIENT
  Age: 70 Year
  Sex: Female

DRUGS (19)
  1. REZUROCK [Suspect]
     Active Substance: BELUMOSUDIL
     Indication: Chronic graft versus host disease
     Dosage: 200 MG, BID
     Route: 048
  2. ATROVENT HFA [Concomitant]
     Active Substance: IPRATROPIUM BROMIDE
     Dosage: UNK
  3. AZITHROMYCIN [Concomitant]
     Active Substance: AZITHROMYCIN
     Dosage: UNK
  4. AZITHROMYCIN [Concomitant]
     Active Substance: AZITHROMYCIN
  5. BROVANA [Concomitant]
     Active Substance: ARFORMOTEROL TARTRATE
     Dosage: UNK
  6. BROVANA [Concomitant]
     Active Substance: ARFORMOTEROL TARTRATE
  7. BUDESONIDE [Concomitant]
     Active Substance: BUDESONIDE
     Dosage: UNK
  8. BUDESONIDE [Concomitant]
     Active Substance: BUDESONIDE
  9. CYCLOSPORINE [Concomitant]
     Active Substance: CYCLOSPORINE
     Dosage: UNK
  10. CYCLOSPORINE [Concomitant]
     Active Substance: CYCLOSPORINE
  11. ALBUTEROL\IPRATROPIUM [Concomitant]
     Active Substance: ALBUTEROL\IPRATROPIUM
     Dosage: UNK
  12. ITRACONAZOLE [Concomitant]
     Active Substance: ITRACONAZOLE
     Dosage: UNK
  13. MONTELUKAST [Concomitant]
     Active Substance: MONTELUKAST
     Dosage: UNK
  14. OMEPRAZOLE [Concomitant]
     Active Substance: OMEPRAZOLE
     Dosage: UNK
  15. OXYCODONE [Concomitant]
     Active Substance: OXYCODONE
     Dosage: UNK
  16. PREDNISONE [Concomitant]
     Active Substance: PREDNISONE
     Dosage: UNK
  17. QVAR REDIHALER [Concomitant]
     Active Substance: BECLOMETHASONE DIPROPIONATE
     Dosage: UNK
  18. SIROLIMUS [Concomitant]
     Active Substance: SIROLIMUS
     Dosage: UNK
  19. ZEPBOUND [Concomitant]
     Active Substance: TIRZEPATIDE
     Dosage: UNK

REACTIONS (1)
  - Cardiac disorder [Unknown]
